FAERS Safety Report 8509755-8 (Version None)
Quarter: 2012Q3

REPORT INFORMATION
  Report Type: 
  Country: None (occurrence: None)
  Receive Date: 20120713
  Receipt Date: 20120704
  Transmission Date: 20120928
  Serious: Yes (Other)
  Sender: FDA-Public Use
  Company Number: DE-BAXTER-2012BAX010428

PATIENT
  Age: 12 Month
  Sex: Female
  Weight: 11.6 kg

DRUGS (1)
  1. KIOVIG [Suspect]
     Indication: KAWASAKI'S DISEASE
     Route: 042
     Dates: start: 20120523, end: 20120523

REACTIONS (1)
  - ANAPHYLACTIC REACTION [None]
